FAERS Safety Report 16679073 (Version 1)
Quarter: 2019Q3

REPORT INFORMATION
  Report Type: Spontaneous
  Country: ES (occurrence: ES)
  Receive Date: 20190807
  Receipt Date: 20190807
  Transmission Date: 20191004
  Serious: Yes (Life-Threatening)
  Sender: FDA-Public Use
  Company Number: ES-009507513-1907ESP015653

PATIENT
  Age: 25 Year
  Sex: Male
  Weight: 52 kg

DRUGS (3)
  1. SUGAMMADEX SODIUM [Suspect]
     Active Substance: SUGAMMADEX SODIUM
     Indication: NEUROMUSCULAR BLOCKADE
     Dosage: 100 MILLIGRAM, ONCE
     Route: 042
     Dates: start: 20190707, end: 20190707
  2. ROCURONIUM BROMIDE. [Concomitant]
     Active Substance: ROCURONIUM BROMIDE
     Indication: HYPOTONIA
     Dosage: 10 MILLIGRAM, ONCE; STRENGTH: 10 MG/ML
     Route: 042
     Dates: start: 20190707, end: 20190707
  3. REMIFENTANIL HYDROCHLORIDE. [Concomitant]
     Active Substance: REMIFENTANIL HYDROCHLORIDE
     Indication: ANAESTHESIA DOLOROSA
     Dosage: 25 MICROGRAM, ONCE; STRENGTH: 1 MG, 5 VIALS
     Route: 042
     Dates: start: 20190707, end: 20190707

REACTIONS (2)
  - Myoclonus [Recovered/Resolved]
  - Muscle rigidity [Recovered/Resolved]

NARRATIVE: CASE EVENT DATE: 20190707
